FAERS Safety Report 9244646 (Version 1)
Quarter: 2013Q2

REPORT INFORMATION
  Report Type: Spontaneous
  Country: BR (occurrence: BR)
  Receive Date: 20130422
  Receipt Date: 20130422
  Transmission Date: 20140414
  Serious: Yes (Other)
  Sender: FDA-Public Use
  Company Number: BR-AMGEN-BRASP2013027255

PATIENT
  Age: 58 Year
  Sex: Female
  Weight: 69 kg

DRUGS (12)
  1. ENBREL [Suspect]
     Indication: RHEUMATOID ARTHRITIS
     Dosage: 50 MG, ONCE WEEKLY
     Route: 058
     Dates: start: 201302
  2. ENBREL [Suspect]
     Dosage: 25 MG, 2X/WEEK
  3. METHOTREXATE [Concomitant]
     Dosage: UNK
  4. SIMVASTATIN [Concomitant]
     Indication: BLOOD CHOLESTEROL ABNORMAL
     Dosage: 20 MG, 1X/DAY AT NIGHT
     Dates: start: 2005
  5. HYDROCHLOROTHIAZIDE W/LOSARTAN [Concomitant]
     Indication: HYPERTENSION
     Dosage: UNK
     Dates: start: 2005
  6. DOMPERIDONE [Concomitant]
     Dosage: UNK
  7. OMEPRAZOLE [Concomitant]
     Indication: GASTRIC DISORDER
     Dosage: UNK
     Dates: start: 2011
  8. ATENOLOL [Concomitant]
     Dosage: 50 MG, 1X/DAY
  9. MONOCORDIL [Concomitant]
     Indication: CARDIAC DISORDER
     Dosage: UNK,1X/DAY
     Dates: start: 2005
  10. GLIFAGE [Concomitant]
     Indication: DIABETES MELLITUS
     Dosage: 850 MG, 2X/DAY
  11. TYLEX                              /00116401/ [Concomitant]
     Indication: PAIN
     Dosage: UNK, AS NEEDED
  12. AAS [Concomitant]
     Indication: CARDIAC DISORDER
     Dosage: 100 MG, 1X/DAY

REACTIONS (4)
  - Fracture [Unknown]
  - Chondropathy [Unknown]
  - Pain in extremity [Unknown]
  - Drug ineffective [Unknown]
